FAERS Safety Report 9667464 (Version 1)
Quarter: 2013Q4

REPORT INFORMATION
  Report Type: Spontaneous
  Country: US (occurrence: US)
  Receive Date: 20131101
  Receipt Date: 20131101
  Transmission Date: 20140711
  Serious: Yes (Other)
  Sender: FDA-Public Use
  Company Number: US-SAVIENT-2012S1000071

PATIENT
  Age: 63 Year
  Sex: Male
  Weight: 68.95 kg

DRUGS (17)
  1. KRYSTEXXA INJECTION [Suspect]
     Indication: GOUT
     Route: 042
     Dates: start: 20120702, end: 20120702
  2. CLARITIN /00917501/ [Concomitant]
     Indication: PREMEDICATION
     Route: 048
     Dates: start: 20120702, end: 20120702
  3. CLARITIN /00917501/ [Concomitant]
     Indication: URTICARIA
     Route: 048
     Dates: start: 20120702, end: 20120702
  4. CLARITIN /00917501/ [Concomitant]
     Indication: PREMEDICATION
     Route: 048
     Dates: start: 20120709
  5. CLARITIN /00917501/ [Concomitant]
     Indication: URTICARIA
     Route: 048
     Dates: start: 20120709
  6. ACETAMINOPHEN [Concomitant]
     Indication: PREMEDICATION
     Dates: start: 20120702, end: 20120702
  7. SOLU-MEDROL [Concomitant]
     Indication: PREMEDICATION
     Route: 042
     Dates: start: 20120702, end: 20120702
  8. PREDNISONE [Concomitant]
     Indication: PROPHYLAXIS
     Dates: start: 20120701, end: 201207
  9. PREDNISONE [Concomitant]
     Indication: PROPHYLAXIS
     Dates: start: 201207, end: 201207
  10. PREDNISONE [Concomitant]
     Indication: PROPHYLAXIS
     Dates: start: 201207
  11. PERCOCET /00446701/ [Concomitant]
     Indication: BACK PAIN
     Dates: start: 1974
  12. LASIX /00032601/ [Concomitant]
     Indication: PRODUCT USED FOR UNKNOWN INDICATION
     Route: 048
     Dates: start: 1997
  13. VENTOLIN /00139502/ [Concomitant]
     Indication: ASTHMA
     Route: 055
     Dates: start: 1997
  14. DIAZEPAM [Concomitant]
     Indication: MUSCLE SPASMS
  15. ALLOPURINOL [Concomitant]
     Indication: PRODUCT USED FOR UNKNOWN INDICATION
     Dates: start: 2002, end: 20120630
  16. ALLOPURINOL [Concomitant]
     Indication: PRODUCT USED FOR UNKNOWN INDICATION
     Dates: start: 201207
  17. INDOMETHACIN /00003801/ [Concomitant]
     Indication: GOUT
     Dates: start: 2002, end: 20120630

REACTIONS (4)
  - Type IV hypersensitivity reaction [Recovering/Resolving]
  - Chest pain [Recovered/Resolved]
  - Gout [Recovering/Resolving]
  - Nausea [Recovered/Resolved]
